FAERS Safety Report 17253055 (Version 1)
Quarter: 2020Q1

REPORT INFORMATION
  Report Type: Not Available
  Country: None (occurrence: None)
  Receive Date: 20200109
  Receipt Date: 20200109
  Transmission Date: 20200409
  Serious: No
  Sender: FDA-Public Use
  Company Number: US-AKORN- 137177

PATIENT
  Sex: Female

DRUGS (1)
  1. COSOPT PF [Suspect]
     Active Substance: DORZOLAMIDE HYDROCHLORIDE\TIMOLOL MALEATE

REACTIONS (2)
  - Blood pressure increased [None]
  - Hypersensitivity [None]
